FAERS Safety Report 20998377 (Version 1)
Quarter: 2022Q3

REPORT INFORMATION
  Report Type: Spontaneous
  Country: US (occurrence: US)
  Receive Date: 20220623
  Receipt Date: 20220623
  Transmission Date: 20221027
  Serious: Yes (Other)
  Sender: FDA-Public Use
  Company Number: US-NOVARTISPH-NVSC2022US142048

PATIENT
  Age: 3 Month
  Sex: Female

DRUGS (5)
  1. CARBOPLATIN [Suspect]
     Active Substance: CARBOPLATIN
     Indication: Glioblastoma
     Dosage: UNK UNK, CYCLIC, (2 CYCLES OF CARBOPLATIN/ETOPOSIDE)
     Route: 065
  2. CARBOPLATIN [Suspect]
     Active Substance: CARBOPLATIN
     Dosage: UNK UNK, CYCLIC, (2 CYCLES OF CARBOPLATIN/ETOPOSIDE/IMATINIB)
     Route: 065
  3. IMATINIB [Suspect]
     Active Substance: IMATINIB
     Indication: Glioblastoma
     Dosage: UNK UNK, CYCLIC, (2 CYCLES OF CARBOPLATIN/ETOPOSIDE/IMATINIB)
     Route: 065
  4. ETOPOSIDE [Suspect]
     Active Substance: ETOPOSIDE
     Indication: Glioblastoma
     Dosage: UNK UNK, CYCLIC, (2 CYCLES OF CARBOPLATIN/ETOPOSIDE)
     Route: 065
  5. ETOPOSIDE [Suspect]
     Active Substance: ETOPOSIDE
     Dosage: UNK UNK, CYCLIC, (2 CYCLES OF CARBOPLATIN/ETOPOSIDE/IMATINIB)
     Route: 065

REACTIONS (3)
  - Glioblastoma [Unknown]
  - Malignant neoplasm progression [Unknown]
  - Product use in unapproved indication [Unknown]
